FAERS Safety Report 14237095 (Version 1)
Quarter: 2017Q4

REPORT INFORMATION
  Report Type: Report from Study
  Country: US (occurrence: US)
  Receive Date: 20171129
  Receipt Date: 20171129
  Transmission Date: 20180321
  Serious: Yes (Hospitalization, Other)
  Sender: FDA-Public Use
  Company Number: US-TEVA-2017-US-826680

PATIENT
  Sex: Male

DRUGS (18)
  1. PONATINIB [Suspect]
     Active Substance: PONATINIB
     Dosage: 45 MILLIGRAM DAILY;
     Route: 048
     Dates: start: 20150723
  2. PONATINIB [Suspect]
     Active Substance: PONATINIB
     Route: 048
     Dates: end: 20160415
  3. PONATINIB [Suspect]
     Active Substance: PONATINIB
     Dosage: 30 MILLIGRAM DAILY;
     Route: 048
  4. CODEINE W/GUAIFENESIN [Concomitant]
     Active Substance: CODEINE\GUAIFENESIN
  5. PONATINIB [Suspect]
     Active Substance: PONATINIB
     Indication: CHRONIC MYELOID LEUKAEMIA
     Dosage: 30 MILLIGRAM DAILY;
     Route: 048
     Dates: start: 201410, end: 20150722
  6. PONATINIB [Suspect]
     Active Substance: PONATINIB
     Dosage: 30 MILLIGRAM DAILY;
     Route: 048
  7. ACETAMINOPHEN. [Concomitant]
     Active Substance: ACETAMINOPHEN
  8. FLAXSEED [Concomitant]
     Active Substance: FLAX SEED
  9. HYDROCHLOROTHIAZIDE. [Concomitant]
     Active Substance: HYDROCHLOROTHIAZIDE
  10. AMLODIPINE [Concomitant]
     Active Substance: AMLODIPINE BESYLATE
  11. DEPOCYT [Suspect]
     Active Substance: CYTARABINE
     Indication: PRODUCT USED FOR UNKNOWN INDICATION
     Route: 065
     Dates: start: 20160111, end: 20160121
  12. CHLORHEXIDINE [Concomitant]
     Active Substance: CHLORHEXIDINE
  13. ARA-C [Suspect]
     Active Substance: CYTARABINE
     Indication: PRODUCT USED FOR UNKNOWN INDICATION
     Dates: start: 20160111, end: 20160121
  14. ZOFRAN [Concomitant]
     Active Substance: ONDANSETRON HYDROCHLORIDE
  15. ASPIRIN. [Concomitant]
     Active Substance: ASPIRIN
  16. METHOTREXATE. [Suspect]
     Active Substance: METHOTREXATE
     Indication: PRODUCT USED FOR UNKNOWN INDICATION
     Dates: start: 20151217, end: 20160121
  17. VITAMIN D3 [Concomitant]
     Active Substance: CHOLECALCIFEROL
  18. HYDROCORTISONE. [Concomitant]
     Active Substance: HYDROCORTISONE

REACTIONS (2)
  - Meningitis chemical [Unknown]
  - Bone marrow failure [Unknown]
